FAERS Safety Report 23761782 (Version 3)
Quarter: 2024Q2

REPORT INFORMATION
  Report Type: Spontaneous
  Country: US (occurrence: US)
  Receive Date: 20240419
  Receipt Date: 20240619
  Transmission Date: 20240715
  Serious: Yes (Other)
  Sender: FDA-Public Use
  Company Number: US-BAYER-2024A056063

PATIENT
  Age: 36 Year
  Sex: Male

DRUGS (2)
  1. JIVI [Suspect]
     Active Substance: DAMOCTOCOG ALFA PEGOL
     Indication: Factor VIII deficiency
     Dosage: 4000 IU, Q2WK  (3600-4400)
     Route: 042
     Dates: start: 202403
  2. JIVI [Suspect]
     Active Substance: DAMOCTOCOG ALFA PEGOL
     Indication: Factor VIII deficiency
     Dosage: 2 DF / 4000 UNITS
     Route: 042
     Dates: start: 20240604, end: 20240607

REACTIONS (4)
  - Haemarthrosis [None]
  - Haemarthrosis [Not Recovered/Not Resolved]
  - Haemorrhage [None]
  - Weight increased [None]

NARRATIVE: CASE EVENT DATE: 20240512
